FAERS Safety Report 8907796 (Version 1)
Quarter: 2012Q4

REPORT INFORMATION
  Report Type: 
  Country: FR (occurrence: FR)
  Receive Date: 20121113
  Receipt Date: 20121113
  Transmission Date: 20130627
  Serious: Yes (Hospitalization)
  Sender: FDA-Public Use
  Company Number: FR-BAUSCH-BL-2012-001680

PATIENT
  Sex: Female

DRUGS (1)
  1. BROMFENAC [Suspect]
     Indication: POSTOPERATIVE CARE
     Route: 047
     Dates: start: 20121026, end: 20121026

REACTIONS (1)
  - Eye inflammation [Recovering/Resolving]
